FAERS Safety Report 6378824-3 (Version None)
Quarter: 2009Q3

REPORT INFORMATION
  Report Type: 
  Country: None (occurrence: None)
  Receive Date: 20090928
  Receipt Date: 20090716
  Transmission Date: 20100115
  Serious: No
  Sender: FDA-Public Use
  Company Number: US-BAYER-200927253NA

PATIENT
  Age: 48 Year
  Sex: Female

DRUGS (2)
  1. MIRENA [Suspect]
     Indication: MENSTRUAL DISORDER
     Dosage: CONTINUOUS
     Route: 015
     Dates: start: 20060101, end: 20090201
  2. BETASERON [Concomitant]
     Indication: MULTIPLE SCLEROSIS
     Dates: start: 20051017

REACTIONS (5)
  - HOT FLUSH [None]
  - HYPOAESTHESIA [None]
  - MENSTRUATION IRREGULAR [None]
  - PREMATURE MENOPAUSE [None]
  - VAGINAL HAEMORRHAGE [None]
